FAERS Safety Report 5940157-4 (Version None)
Quarter: 2008Q4

REPORT INFORMATION
  Report Type: 
  Country: None (occurrence: None)
  Receive Date: 20081031
  Receipt Date: 20081031
  Transmission Date: 20090506
  Serious: Yes (Hospitalization)
  Sender: FDA-Public Use
  Company Number: None

PATIENT
  Age: 8 Year
  Sex: Female
  Weight: 32.1 kg

DRUGS (10)
  1. BORTEZOMIB [Suspect]
     Indication: ACUTE LYMPHOCYTIC LEUKAEMIA
     Dosage: 1.3MG/M2/DAY DAYS 1, 4, 8, 11 IV
     Route: 042
     Dates: start: 20080723
  2. BORTEZOMIB [Suspect]
     Indication: ACUTE LYMPHOCYTIC LEUKAEMIA
     Dosage: 1.3MG/M2/DAY DAYS 1, 4, 8, 11 IV
     Route: 042
     Dates: start: 20080726
  3. BORTEZOMIB [Suspect]
     Indication: ACUTE LYMPHOCYTIC LEUKAEMIA
     Dosage: 1.3MG/M2/DAY DAYS 1, 4, 8, 11 IV
     Route: 042
     Dates: start: 20080730
  4. DAPSONE [Concomitant]
  5. DEXAMETHASONE [Concomitant]
  6. DOCUSATE [Concomitant]
  7. FLUCONAZOLE [Concomitant]
  8. MIRALAX [Concomitant]
  9. ONDANSETRON [Concomitant]
  10. RANITIDINE [Concomitant]

REACTIONS (16)
  - ABDOMINAL PAIN [None]
  - AEROMONA INFECTION [None]
  - ATELECTASIS [None]
  - BLOOD CULTURE POSITIVE [None]
  - BLOOD PRESSURE DECREASED [None]
  - BODY TEMPERATURE INCREASED [None]
  - CHEST PAIN [None]
  - CHILLS [None]
  - COLLAPSE OF LUNG [None]
  - HAEMOGLOBIN DECREASED [None]
  - HEADACHE [None]
  - NEUTROPHIL COUNT DECREASED [None]
  - OXYGEN SATURATION DECREASED [None]
  - PLATELET COUNT DECREASED [None]
  - PNEUMONIA [None]
  - WHITE BLOOD CELL COUNT DECREASED [None]
